FAERS Safety Report 5817858-1 (Version None)
Quarter: 2008Q3

REPORT INFORMATION
  Report Type: 
  Country: None (occurrence: None)
  Receive Date: 20080722
  Receipt Date: 20070627
  Transmission Date: 20090109
  Serious: Yes (Other)
  Sender: FDA-Public Use
  Company Number: US-BAYER-US-2007-020599

PATIENT
  Age: 40 Year
  Sex: Male

DRUGS (1)
  1. MAGNEVIST [Suspect]
     Indication: NUCLEAR MAGNETIC RESONANCE IMAGING
     Dates: start: 20070501, end: 20070501

REACTIONS (8)
  - DYSPHAGIA [None]
  - DYSPNOEA [None]
  - ERYTHEMA [None]
  - PRURITUS [None]
  - SKIN SWELLING [None]
  - THROAT IRRITATION [None]
  - THROAT TIGHTNESS [None]
  - URTICARIA [None]
